FAERS Safety Report 5333965-4 (Version None)
Quarter: 2007Q2

REPORT INFORMATION
  Report Type: 
  Country: None (occurrence: None)
  Receive Date: 20070524
  Receipt Date: 20070514
  Transmission Date: 20071010
  Serious: Yes (Hospitalization)
  Sender: FDA-Public Use
  Company Number: CH-SANOFI-SYNTHELABO-F01200700628

PATIENT
  Sex: Male

DRUGS (8)
  1. GLICLAZIDUM [Concomitant]
     Dates: start: 20040615
  2. CAPECITABINE [Suspect]
     Dosage: 3300 MG
     Route: 048
     Dates: start: 20061108
  3. IRINOTECAN HCL [Suspect]
     Dosage: 200 MG
     Route: 042
  4. OXALIPLATIN [Suspect]
     Indication: COLORECTAL CANCER
     Dosage: 140 MG
     Route: 042
  5. ZOLPIDEM [Concomitant]
     Dates: start: 20041220
  6. LEVOTHYROXINUM NATRICUM [Concomitant]
     Dates: start: 20040615
  7. CANDESARTANUM [Concomitant]
     Dates: start: 20040615
  8. ACIDUM ACETYLSALICYLICUM [Concomitant]
     Dates: start: 20040615

REACTIONS (3)
  - HYPOKALAEMIA [None]
  - MENIERE'S DISEASE [None]
  - VOMITING [None]
